FAERS Safety Report 5320900-8 (Version None)
Quarter: 2007Q2

REPORT INFORMATION
  Report Type: 
  Country: None (occurrence: None)
  Receive Date: 20070504
  Receipt Date: 20070426
  Transmission Date: 20071010
  Serious: Yes (Life-Threatening, Hospitalization)
  Sender: FDA-Public Use
  Company Number: T200700474

PATIENT
  Age: 77 Year
  Sex: Male
  Weight: 58 kg

DRUGS (9)
  1. OPTIRAY 240 [Suspect]
     Indication: COMPUTERISED TOMOGRAM ABDOMEN
     Dosage: 100 ML SINGLE INTRAVENOUS
     Route: 042
     Dates: start: 20070426, end: 20070426
  2. POTASSIUM CITRATE W/SODIUM CITRATE (POTASSIUM CITRATE, SODIUM CITRATE) [Concomitant]
  3. CHORE TO (CHINESE HERBAL MEDICINE) [Concomitant]
  4. VALSARTAN [Concomitant]
  5. ASPIRIN [Concomitant]
  6. NILVADIPINE (NILVADIPINE) [Concomitant]
  7. IBUDILAST (IBUDILAST) [Concomitant]
  8. AZILENE-SULFONATE SODIUM L-GLUTAMINE [Concomitant]
  9. BOPINDOLOL (BOPINDOLOL) [Concomitant]

REACTIONS (4)
  - ANAPHYLACTIC SHOCK [None]
  - IMMEDIATE POST-INJECTION REACTION [None]
  - LOSS OF CONSCIOUSNESS [None]
  - OXYGEN SATURATION DECREASED [None]
